FAERS Safety Report 5652468-0 (Version None)
Quarter: 2008Q1

REPORT INFORMATION
  Report Type: 
  Country: None (occurrence: None)
  Receive Date: 20080305
  Receipt Date: 20080305
  Transmission Date: 20080703
  Serious: Yes (Hospitalization)
  Sender: FDA-Public Use
  Company Number: None

PATIENT
  Age: 8 Year
  Sex: Female
  Weight: 23.587 kg

DRUGS (2)
  1. SULFAMETHOXAZOLE AND TRIMETHOPRIM [Suspect]
     Indication: URINARY TRACT INFECTION
     Dosage: 2 1/2 TEASPONFULS TWICE DAILY PO
     Route: 048
     Dates: start: 20080105, end: 20080115
  2. SULFAMETHOXAZOLE AND TRIMETHOPRIM [Suspect]
     Indication: URINARY TRACT INFECTION
     Dosage: 2 1/2 TEASPONFULS TWICE DAILY PO
     Route: 048
     Dates: start: 20080130, end: 20080130

REACTIONS (10)
  - HEADACHE [None]
  - HYPERSENSITIVITY [None]
  - LIP SWELLING [None]
  - OCULAR HYPERAEMIA [None]
  - RASH MACULAR [None]
  - RESPIRATORY RATE DECREASED [None]
  - SWELLING FACE [None]
  - TREMOR [None]
  - VISUAL ACUITY REDUCED [None]
  - VOMITING [None]
